FAERS Safety Report 4702398-3 (Version None)
Quarter: 2005Q2

REPORT INFORMATION
  Report Type: 
  Country: None (occurrence: None)
  Receive Date: 20050624
  Receipt Date: 20050302
  Transmission Date: 20051028
  Serious: No
  Sender: FDA-Public Use
  Company Number: 2005BI005048

PATIENT
  Age: 50 Year
  Sex: Female
  Weight: 57.6068 kg

DRUGS (6)
  1. AVONEX [Suspect]
     Indication: MULTIPLE SCLEROSIS
     Dosage: 7.5 UG; QW; IM;  15 UG; QW; IM;  22.5 UG; QW; IM;  30 UG; QW; IM
     Route: 030
     Dates: start: 20000801, end: 20000801
  2. AVONEX [Suspect]
     Indication: MULTIPLE SCLEROSIS
     Dosage: 7.5 UG; QW; IM;  15 UG; QW; IM;  22.5 UG; QW; IM;  30 UG; QW; IM
     Route: 030
     Dates: start: 20000901, end: 20000901
  3. AVONEX [Suspect]
     Indication: MULTIPLE SCLEROSIS
     Dosage: 7.5 UG; QW; IM;  15 UG; QW; IM;  22.5 UG; QW; IM;  30 UG; QW; IM
     Route: 030
     Dates: start: 20000901, end: 20000901
  4. AVONEX [Suspect]
     Indication: MULTIPLE SCLEROSIS
     Dosage: 7.5 UG; QW; IM;  15 UG; QW; IM;  22.5 UG; QW; IM;  30 UG; QW; IM
     Route: 030
     Dates: start: 20001001, end: 20030801
  5. AVONEX [Suspect]
     Indication: MULTIPLE SCLEROSIS
     Dosage: 30 UG; QW; IM
     Route: 030
     Dates: start: 20030801, end: 20050101
  6. NATALIZUMAB [Suspect]
     Indication: MULTIPLE SCLEROSIS
     Dosage: 300 MG; QM; IV
     Route: 042
     Dates: start: 20050124, end: 20050221

REACTIONS (4)
  - CHILLS [None]
  - HEADACHE [None]
  - PYREXIA [None]
  - WEIGHT INCREASED [None]
